FAERS Safety Report 5482141-3 (Version None)
Quarter: 2007Q4

REPORT INFORMATION
  Report Type: 
  Country: None (occurrence: None)
  Receive Date: 20071011
  Receipt Date: 20070928
  Transmission Date: 20080405
  Serious: Yes (Death)
  Sender: FDA-Public Use
  Company Number: US-JNJFOC-20071001780

PATIENT
  Age: 2 Month
  Sex: Male

DRUGS (7)
  1. CHILDREN'S MOTRIN [Suspect]
  2. CHILDREN'S MOTRIN [Suspect]
     Indication: DRUG USE FOR UNKNOWN INDICATION
     Dosage: UNKNOWN
  3. CARBAXEFED DM/RF [Suspect]
     Indication: INTERSTITIAL LUNG DISEASE
  4. CHILDREN'S ADVIL [Suspect]
     Indication: DRUG USE FOR UNKNOWN INDICATION
     Dosage: UNKNOWN
  5. ADVIL LIQUI-GELS [Concomitant]
  6. MOTRIN [Concomitant]
  7. UNSPECIFIED ANTIBIOTIC [Concomitant]

REACTIONS (3)
  - CONSTIPATION [None]
  - DEATH [None]
  - PHARMACEUTICAL PRODUCT COMPLAINT [None]
